FAERS Safety Report 18421879 (Version 1)
Quarter: 2020Q4

REPORT INFORMATION
  Report Type: Spontaneous
  Country: CA (occurrence: CA)
  Receive Date: 20201023
  Receipt Date: 20201023
  Transmission Date: 20210114
  Serious: Yes (Other)
  Sender: FDA-Public Use
  Company Number: CA-JNJFOC-20201025475

PATIENT
  Age: 23 Year
  Sex: Female
  Weight: 66 kg

DRUGS (2)
  1. INFLIXIMAB, RECOMBINANT [Suspect]
     Active Substance: INFLIXIMAB
     Indication: CROHN^S DISEASE
     Route: 042
  2. PURINETHOL [Concomitant]
     Active Substance: MERCAPTOPURINE
     Route: 065

REACTIONS (19)
  - Fungal skin infection [Recovered/Resolved]
  - Increased appetite [Recovered/Resolved]
  - Folliculitis [Recovered/Resolved]
  - Infection [Recovered/Resolved]
  - Nasopharyngitis [Recovered/Resolved]
  - Ingrown hair [Recovered/Resolved]
  - Conjunctivitis [Recovered/Resolved]
  - Nasal congestion [Recovered/Resolved]
  - Off label use [Recovered/Resolved]
  - Product use issue [Recovered/Resolved]
  - Eczema [Recovered/Resolved]
  - Eyelid oedema [Recovered/Resolved]
  - Condition aggravated [Recovered/Resolved]
  - Pruritus [Recovered/Resolved]
  - Psoriasis [Recovered/Resolved]
  - Heart rate decreased [Recovered/Resolved]
  - Acne [Recovered/Resolved]
  - Rhinorrhoea [Recovered/Resolved]
  - Weight increased [Recovered/Resolved]
